FAERS Safety Report 5849068-6 (Version None)
Quarter: 2008Q3

REPORT INFORMATION
  Report Type: 
  Country: None (occurrence: None)
  Receive Date: 20080819
  Receipt Date: 20080811
  Transmission Date: 20090109
  Serious: Yes (Other)
  Sender: FDA-Public Use
  Company Number: PHHY2008BE17562

PATIENT
  Age: 69 Year
  Sex: Female

DRUGS (4)
  1. ZOMETA [Suspect]
     Dosage: 4 MG, QMO
     Dates: start: 20060101, end: 20080522
  2. ZOMETA [Suspect]
     Dosage: UNK
     Dates: start: 20080801
  3. MOBIC [Concomitant]
     Indication: BONE PAIN
  4. DAFALGAN [Concomitant]
     Indication: BONE PAIN

REACTIONS (4)
  - BONE PAIN [None]
  - GINGIVAL ULCERATION [None]
  - OSTEONECROSIS [None]
  - TOOTHACHE [None]
